FAERS Safety Report 14133919 (Version 3)
Quarter: 2018Q2

REPORT INFORMATION
  Report Type: Spontaneous
  Country: US (occurrence: US)
  Receive Date: 20171027
  Receipt Date: 20180601
  Transmission Date: 20180711
  Serious: No
  Sender: FDA-Public Use
  Company Number: US-PFIZER INC-2017463155

PATIENT
  Sex: Male

DRUGS (1)
  1. INLYTA [Suspect]
     Active Substance: AXITINIB
     Dosage: UNK
     Dates: end: 20171216

REACTIONS (4)
  - Accident [Unknown]
  - Drug dose omission [Unknown]
  - Hypoacusis [Recovered/Resolved]
  - Peripheral swelling [Unknown]
